FAERS Safety Report 8817580 (Version 2)
Quarter: 2012Q4

REPORT INFORMATION
  Report Type: 
  Country: US (occurrence: US)
  Receive Date: 20121001
  Receipt Date: 20121115
  Transmission Date: 20130627
  Serious: Yes (Hospitalization, Other)
  Sender: FDA-Public Use
  Company Number: US-NOVOPROD-360712

PATIENT
  Age: 66 Year
  Sex: Female
  Weight: 87.98 kg

DRUGS (2)
  1. VICTOZA [Suspect]
     Indication: TYPE 2 DIABETES MELLITUS
     Dosage: 1.8 mg, qd
     Dates: end: 20120910
  2. VICTOZA [Suspect]
     Dosage: 1.8 mg, qd
     Route: 058
     Dates: start: 20120920

REACTIONS (2)
  - Ileus paralytic [Recovered/Resolved]
  - Hernia repair [Unknown]
